FAERS Safety Report 17219729 (Version 2)
Quarter: 2020Q1

REPORT INFORMATION
  Report Type: Spontaneous
  Country: US (occurrence: US)
  Receive Date: 20191231
  Receipt Date: 20200311
  Transmission Date: 20200409
  Serious: Yes (Hospitalization, Other)
  Sender: FDA-Public Use
  Company Number: US-ASTRAZENECA-2019SF88076

PATIENT
  Age: 27851 Day
  Sex: Male
  Weight: 79.4 kg

DRUGS (2)
  1. BRILINTA [Suspect]
     Active Substance: TICAGRELOR
     Indication: CORONARY ARTERIAL STENT INSERTION
     Route: 048
     Dates: start: 20181221
  2. ASPIRIN. [Concomitant]
     Active Substance: ASPIRIN

REACTIONS (6)
  - Myocardial infarction [Unknown]
  - Diverticulum intestinal haemorrhagic [Unknown]
  - Blood pressure decreased [Unknown]
  - Amnesia [Unknown]
  - Loss of consciousness [Unknown]
  - Hypoacusis [Unknown]

NARRATIVE: CASE EVENT DATE: 201903
